FAERS Safety Report 6056300-5 (Version None)
Quarter: 2009Q1

REPORT INFORMATION
  Report Type: 
  Country: None (occurrence: None)
  Receive Date: 20090129
  Receipt Date: 20090115
  Transmission Date: 20090719
  Serious: No
  Sender: FDA-Public Use
  Company Number: CA-ASTRAZENECA-2009UW01381

PATIENT
  Age: 75 Year
  Sex: Female
  Weight: 55.8 kg

DRUGS (1)
  1. NEXIUM [Suspect]
     Route: 048

REACTIONS (2)
  - DYSPHAGIA [None]
  - GASTROINTESTINAL DISORDER [None]
